FAERS Safety Report 9513437 (Version 1)
Quarter: 2013Q3

REPORT INFORMATION
  Report Type: Spontaneous
  Country: US (occurrence: US)
  Receive Date: 20130910
  Receipt Date: 20130910
  Transmission Date: 20140515
  Serious: No
  Sender: FDA-Public Use
  Company Number: US-TARO-2012P1063642

PATIENT
  Age: 91 Year
  Sex: Female
  Weight: 63.05 kg

DRUGS (4)
  1. WARFARIN SODIUM TABLETS USP 1MG [Suspect]
     Indication: ATRIAL FIBRILLATION
     Route: 048
     Dates: start: 2009, end: 20121102
  2. WARFARIN SODIUM TABLETS USP 1MG [Suspect]
     Indication: ATRIAL FIBRILLATION
     Route: 048
     Dates: start: 20121103
  3. WARFARIN SODIUM TABLETS USP 2MG [Suspect]
     Indication: ATRIAL FIBRILLATION
     Route: 048
     Dates: start: 2009
  4. HYDROCHLOROTHIAZIDE [Concomitant]

REACTIONS (1)
  - International normalised ratio increased [Not Recovered/Not Resolved]
